FAERS Safety Report 4605739-0 (Version None)
Quarter: 2005Q1

REPORT INFORMATION
  Report Type: 
  Country: None (occurrence: None)
  Receive Date: 20050311
  Receipt Date: 20050301
  Transmission Date: 20050727
  Serious: Yes (Death)
  Sender: FDA-Public Use
  Company Number: GB-NOVOPROD-242681

PATIENT
  Age: 58 Year
  Sex: Male

DRUGS (1)
  1. NOVOSEVEN [Suspect]
     Indication: FACTOR VII DEFICIENCY

REACTIONS (2)
  - ACUTE PULMONARY OEDEMA [None]
  - VENTRICULAR HYPERTROPHY [None]
